FAERS Safety Report 8170502-3 (Version None)
Quarter: 2012Q1

REPORT INFORMATION
  Report Type: 
  Country: None (occurrence: None)
  Receive Date: 20120228
  Receipt Date: 20120221
  Transmission Date: 20120608
  Serious: Yes (Hospitalization, Disabling)
  Sender: FDA-Public Use
  Company Number: US-AMGEN-USASP2012011556

PATIENT
  Age: 62 Year
  Sex: Female

DRUGS (2)
  1. ENBREL [Suspect]
     Indication: RHEUMATOID ARTHRITIS
  2. ENBREL [Suspect]
     Indication: OSTEOARTHRITIS
     Dosage: UNK
     Dates: start: 20050825, end: 20120101

REACTIONS (7)
  - FEMUR FRACTURE [None]
  - RHEUMATOID ARTHRITIS [None]
  - LYMPHOCYTE COUNT ABNORMAL [None]
  - INCISION SITE CELLULITIS [None]
  - OSTEOARTHRITIS [None]
  - MUSCULOSKELETAL PAIN [None]
  - NECK PAIN [None]
